FAERS Safety Report 7000176-6 (Version None)
Quarter: 2010Q3

REPORT INFORMATION
  Report Type: 
  Country: None (occurrence: None)
  Receive Date: 20100920
  Receipt Date: 20070516
  Transmission Date: 20110219
  Serious: Yes (Hospitalization, Other)
  Sender: FDA-Public Use
  Company Number: US-ASTRAZENECA-2006UW25924

PATIENT
  Age: 23970 Day
  Sex: Female
  Weight: 68.9 kg

DRUGS (17)
  1. SEROQUEL [Suspect]
     Indication: BIPOLAR DISORDER
     Dosage: 20-40 MG
     Route: 048
     Dates: start: 20010120
  2. SEROQUEL [Suspect]
     Dosage: 100 MG-600 MG
     Route: 048
     Dates: start: 20021205
  3. BUSPAR [Suspect]
     Dosage: 15 MG-30 MG
     Route: 048
     Dates: start: 20060210
  4. BUSPAR [Suspect]
     Dates: start: 20060101
  5. GEODON [Suspect]
     Dates: start: 20061201
  6. METHADONE [Concomitant]
     Dosage: 80 MG-1200 MG
     Dates: start: 20040820
  7. AMBIEN [Concomitant]
     Route: 048
     Dates: start: 20080417
  8. CYMBALTA [Concomitant]
     Route: 048
     Dates: start: 20080417
  9. GLIMEPIRIDE [Concomitant]
     Route: 048
     Dates: start: 20080417
  10. GLUCOPHAGE [Concomitant]
     Route: 048
     Dates: start: 20061206
  11. KLONOPIN [Concomitant]
     Route: 048
  12. VALTREX [Concomitant]
     Route: 048
     Dates: start: 20080417
  13. ZOCOR [Concomitant]
     Dosage: 20 MG-80 MG
     Route: 048
  14. LISINOPRIL [Concomitant]
     Route: 048
  15. NEXIUM [Concomitant]
     Dates: start: 20060414
  16. LEXAPRO [Concomitant]
     Route: 048
     Dates: start: 20060414
  17. LIPITOR [Concomitant]
     Route: 048
     Dates: start: 20060306

REACTIONS (4)
  - BLOOD GLUCOSE ABNORMAL [None]
  - DIABETES MELLITUS [None]
  - DIABETES MELLITUS INADEQUATE CONTROL [None]
  - TYPE 2 DIABETES MELLITUS [None]
